FAERS Safety Report 20551405 (Version 1)
Quarter: 2022Q1

REPORT INFORMATION
  Report Type: Spontaneous
  Country: CN (occurrence: CN)
  Receive Date: 20220304
  Receipt Date: 20220304
  Transmission Date: 20220423
  Serious: Yes (Other)
  Sender: FDA-Public Use
  Company Number: CN-ABBVIE-22K-035-4297596-00

PATIENT
  Age: 63 Year
  Sex: Female
  Weight: 45 kg

DRUGS (3)
  1. VALPROATE SODIUM [Suspect]
     Active Substance: VALPROATE SODIUM
     Indication: Epilepsy
     Route: 048
     Dates: start: 201904, end: 201907
  2. VALPROATE SODIUM [Suspect]
     Active Substance: VALPROATE SODIUM
     Route: 048
     Dates: start: 201907, end: 20190910
  3. VALPROATE SODIUM [Suspect]
     Active Substance: VALPROATE SODIUM
     Route: 048
     Dates: start: 20190912

REACTIONS (13)
  - Musculoskeletal stiffness [Recovered/Resolved]
  - Eye movement disorder [Recovered/Resolved]
  - Muscular weakness [Recovered/Resolved]
  - Lacrimation increased [Recovered/Resolved]
  - Musculoskeletal stiffness [Unknown]
  - Eye movement disorder [Unknown]
  - Muscular weakness [Unknown]
  - Lacrimation increased [Unknown]
  - Wrong technique in product usage process [Unknown]
  - Seizure [Unknown]
  - Seizure [Recovered/Resolved]
  - Epilepsy [Recovered/Resolved]
  - Epilepsy [Unknown]

NARRATIVE: CASE EVENT DATE: 20190401
